FAERS Safety Report 14750806 (Version 3)
Quarter: 2018Q3

REPORT INFORMATION
  Report Type: Other
  Country: IT (occurrence: IT)
  Receive Date: 20180412
  Receipt Date: 20180710
  Transmission Date: 20181010
  Serious: Yes (Hospitalization, Other)
  Sender: FDA-Public Use
  Company Number: IT-APOTEX-2018AP009825

PATIENT
  Age: 45 Year
  Sex: Female

DRUGS (3)
  1. LORAZEPAM. [Suspect]
     Active Substance: LORAZEPAM
     Indication: PERSONALITY DISORDER
     Dosage: 1 BOTTLE IN TOTAL
     Route: 048
     Dates: start: 20180203, end: 20180203
  2. STILNOX [Suspect]
     Active Substance: ZOLPIDEM TARTRATE
     Indication: PERSONALITY DISORDER
     Dosage: 900 MG IN TOTAL (90 DF OF 10 MG)
     Route: 048
     Dates: start: 20180203, end: 20180203
  3. QUETIAPINE. [Suspect]
     Active Substance: QUETIAPINE
     Indication: PERSONALITY DISORDER
     Dosage: 4 G, IN TOTAL (20 DF OF 200MG )
     Route: 048
     Dates: start: 20180203, end: 20180203

REACTIONS (2)
  - Drug abuse [Recovered/Resolved]
  - Intentional self-injury [Recovered/Resolved]

NARRATIVE: CASE EVENT DATE: 20180203
